FAERS Safety Report 9058436 (Version 1)
Quarter: 2013Q1

REPORT INFORMATION
  Report Type: Spontaneous
  Country: US (occurrence: US)
  Receive Date: 20130211
  Receipt Date: 20130211
  Transmission Date: 20140127
  Serious: Yes (Other)
  Sender: FDA-Public Use
  Company Number: US-ELI_LILLY_AND_COMPANY-US201301010676

PATIENT
  Age: 48 Year
  Sex: Female

DRUGS (4)
  1. CYMBALTA [Suspect]
     Dosage: 120 MG, UNKNOWN
  2. CYMBALTA [Suspect]
     Dosage: 60 MG, UNKNOWN
  3. BUSPAR [Concomitant]
     Dosage: 30 MG, TID
  4. BUSPAR [Concomitant]
     Dosage: 15 MG, BID

REACTIONS (3)
  - Hepatic cirrhosis [Unknown]
  - Hepatic steatosis [Unknown]
  - Jaundice [Unknown]
